FAERS Safety Report 10081603 (Version 1)
Quarter: 2014Q2

REPORT INFORMATION
  Report Type: Spontaneous
  Country: FR (occurrence: FR)
  Receive Date: 20140416
  Receipt Date: 20140416
  Transmission Date: 20141212
  Serious: Yes (Death, Other)
  Sender: FDA-Public Use
  Company Number: FR-PFIZER INC-2014105212

PATIENT
  Age: 86 Year
  Sex: Female

DRUGS (7)
  1. EUPANTOL [Suspect]
     Dosage: 40 MG, 1X/DAY
     Route: 042
     Dates: start: 20140112, end: 20140130
  2. AMIODARONE [Suspect]
     Dosage: 200 MG, 1X/DAY
     Route: 048
     Dates: start: 20140111, end: 20140130
  3. ACIDE FUSIDIQUE [Suspect]
     Dosage: 1 UNK, QD
     Route: 003
     Dates: start: 20140118, end: 20140130
  4. DIFFU K [Suspect]
     Dosage: UNK
     Route: 048
     Dates: start: 20140127, end: 20140130
  5. VITAMINE K [Suspect]
     Dosage: 10 MG, 1X/DAY
     Route: 042
     Dates: start: 20140128, end: 20140130
  6. CALCIDIA [Suspect]
     Dosage: UNK
     Route: 048
     Dates: start: 20140107, end: 20140130
  7. XYZALL [Suspect]
     Dosage: UNK
     Route: 048
     Dates: start: 20140127, end: 20140130

REACTIONS (4)
  - Respiratory tract infection [Fatal]
  - Condition aggravated [Fatal]
  - Erythema [Unknown]
  - Rash [Unknown]
